FAERS Safety Report 9368763 (Version 2)
Quarter: 2013Q2

REPORT INFORMATION
  Report Type: Spontaneous
  Country: BH (occurrence: BH)
  Receive Date: 20130626
  Receipt Date: 20130628
  Transmission Date: 20140414
  Serious: Yes (Other)
  Sender: FDA-Public Use
  Company Number: PHHY2013BH064144

PATIENT
  Sex: Male

DRUGS (4)
  1. DIGOXIN [Suspect]
     Indication: TACHYCARDIA FOETAL
     Dosage: 0.25 MG 8 HOURLY (MATERNAL DOSE)
     Route: 064
  2. DIGOXIN [Suspect]
     Dosage: 0.25 MG ONCE DAILY (MATERNAL DOSE)
     Route: 064
  3. DIGOXIN [Suspect]
     Dosage: 0.5 MG TWICE DAILY (MATERNAL DOSE)
     Route: 064
  4. DIGOXIN [Suspect]
     Dosage: 0.25 MG TWICE DAILY (MATERNAL DOSE)
     Route: 064

REACTIONS (4)
  - Premature baby [Unknown]
  - Supraventricular tachycardia [Unknown]
  - Tachycardia foetal [Unknown]
  - Foetal exposure during pregnancy [Unknown]
